FAERS Safety Report 4915811-3 (Version None)
Quarter: 2006Q1

REPORT INFORMATION
  Report Type: 
  Country: None (occurrence: None)
  Receive Date: 20060217
  Receipt Date: 20060209
  Transmission Date: 20060701
  Serious: Yes (Disabling)
  Sender: FDA-Public Use
  Company Number: FR-ROCHE-435959

PATIENT
  Age: 51 Year
  Sex: Female
  Weight: 80 kg

DRUGS (18)
  1. XELODA [Suspect]
     Dosage: ON DAYS ONE TO FOURTEEN
     Route: 048
     Dates: start: 20050630, end: 20051110
  2. XELODA [Suspect]
     Dosage: FROM DAYS ONE TO FOURTEEN
     Route: 048
     Dates: start: 20050318
  3. ZOMETA [Suspect]
     Route: 042
     Dates: start: 20020806, end: 20060110
  4. NAVELBINE [Suspect]
     Dosage: ORAL DOSE ON DAY ONE AND DAY EIGHT.
     Route: 048
     Dates: start: 20050630, end: 20051110
  5. NAVELBINE [Suspect]
     Dosage: INJECTABLE AT A DOSE OF 25 MG/M2 GIVEN ON DAYS ONE AND EIGHT.
     Route: 048
     Dates: start: 20050318
  6. SKENAN [Concomitant]
     Dates: start: 20051028
  7. PROZAC [Concomitant]
     Dates: start: 20051028
  8. LANZOR [Concomitant]
     Dates: start: 20051028
  9. HEPT-A-MYL [Concomitant]
     Dates: start: 20051028
  10. PRAXINOR [Concomitant]
     Dates: start: 20051028
  11. ZOLPIDEM [Concomitant]
     Dates: start: 20051028
  12. PREVISCAN [Concomitant]
     Dates: start: 20051028
  13. CLONAZEPAM [Concomitant]
     Dates: start: 20051028
  14. FORLAX [Concomitant]
     Dates: start: 20051028
  15. DITROPAN [Concomitant]
     Dates: start: 20051028
  16. SOLUPRED [Concomitant]
     Dates: start: 20051028
  17. XYLOCAINE [Concomitant]
     Dates: start: 20051028
  18. HEXAQUINE [Concomitant]
     Dates: start: 20051028

REACTIONS (3)
  - ATROPHY OF TONGUE PAPILLAE [None]
  - GINGIVAL BLEEDING [None]
  - OSTEONECROSIS [None]
